FAERS Safety Report 10617619 (Version 1)
Quarter: 2014Q4

REPORT INFORMATION
  Report Type: Spontaneous
  Country: US (occurrence: US)
  Receive Date: 20141201
  Receipt Date: 20141201
  Transmission Date: 20150529
  Serious: Yes (Other)
  Sender: FDA-Public Use
  Company Number: US-GILEAD-2014-0124768

PATIENT
  Age: 68 Year
  Sex: Male

DRUGS (2)
  1. VELETRI [Concomitant]
     Active Substance: EPOPROSTENOL
     Dosage: UNK
  2. LETAIRIS [Suspect]
     Active Substance: AMBRISENTAN
     Indication: PRODUCT USED FOR UNKNOWN INDICATION
     Dosage: 5 MG, QD
     Route: 065
     Dates: start: 20100205

REACTIONS (12)
  - Diarrhoea [Unknown]
  - Renal failure [Unknown]
  - Unevaluable event [Unknown]
  - Chills [Unknown]
  - Fatigue [Unknown]
  - Muscle spasms [Unknown]
  - Oedema [Unknown]
  - Retching [Unknown]
  - Pyrexia [Unknown]
  - Unevaluable event [Unknown]
  - Heart rate abnormal [Unknown]
  - Confusional state [Unknown]

NARRATIVE: CASE EVENT DATE: 20141121
